FAERS Safety Report 8307775-X (Version None)
Quarter: 2012Q2

REPORT INFORMATION
  Report Type: 
  Country: None (occurrence: None)
  Receive Date: 20120424
  Receipt Date: 20120423
  Transmission Date: 20120825
  Serious: No
  Sender: FDA-Public Use
  Company Number: US-BAYER-2012-039524

PATIENT
  Age: 62 Year
  Sex: Male
  Weight: 108.84 kg

DRUGS (4)
  1. BETASERON [Suspect]
     Dosage: 0.3 MG, QOD
     Route: 058
  2. LIPITOR [Concomitant]
     Dosage: 40 MG
  3. METOPROLOL TARTRATE [Concomitant]
     Dosage: 50 MG
  4. ASPIRIN [Concomitant]
     Dosage: 81 MG, EC

REACTIONS (2)
  - INJECTION SITE MASS [None]
  - INJECTION SITE PAIN [None]
